FAERS Safety Report 8437362-4 (Version None)
Quarter: 2012Q2

REPORT INFORMATION
  Report Type: 
  Country: None (occurrence: None)
  Receive Date: 20120614
  Receipt Date: 20120320
  Transmission Date: 20120825
  Serious: No
  Sender: FDA-Public Use
  Company Number: US-AMGEN-USASP2012017884

PATIENT
  Age: 85 Year
  Sex: Female

DRUGS (3)
  1. PROLIA [Suspect]
     Indication: PRODUCT USED FOR UNKNOWN INDICATION
     Dosage: UNK UNK, Q6MO
     Dates: start: 20120308
  2. CALCIUM [Concomitant]
     Dosage: UNK, QD
  3. VITAMIN D [Concomitant]
     Dosage: UNK UNK, QD

REACTIONS (3)
  - PARAESTHESIA [None]
  - TONGUE DISORDER [None]
  - SENSORY DISTURBANCE [None]
